FAERS Safety Report 22209452 (Version 14)
Quarter: 2025Q3

REPORT INFORMATION
  Report Type: Report from Study
  Country: CO (occurrence: CO)
  Receive Date: 20230414
  Receipt Date: 20250925
  Transmission Date: 20251021
  Serious: Yes (Hospitalization, Disabling, Other)
  Sender: ABBVIE
  Company Number: CO-ABBVIE-4726258

PATIENT
  Age: 22 Year
  Sex: Male
  Weight: 59 kg

DRUGS (5)
  1. SKYRIZI [Suspect]
     Active Substance: RISANKIZUMAB-RZAA
     Indication: Psoriasis
     Dosage: FORM STRENGTH: 150 MG?FIRST ADMIN DATE: 2024?SOLUTION FOR INJECTION IN PRE-FILLED SYRINGE
     Route: 058
     Dates: end: 20240911
  2. SKYRIZI [Suspect]
     Active Substance: RISANKIZUMAB-RZAA
     Route: 058
     Dates: start: 20231116, end: 20240530
  3. SKYRIZI [Suspect]
     Active Substance: RISANKIZUMAB-RZAA
     Dosage: FORM STRENGTH: 150 MG?SOLUTION FOR INJECTION IN PRE-FILLED SYRINGE
     Route: 058
     Dates: end: 20250620
  4. SKYRIZI [Suspect]
     Active Substance: RISANKIZUMAB-RZAA
     Route: 058
     Dates: start: 20211029, end: 20230526
  5. TRAMADOL [Suspect]
     Active Substance: TRAMADOL
     Indication: Adverse event
     Route: 042
     Dates: end: 2023

REACTIONS (27)
  - Road traffic accident [Not Recovered/Not Resolved]
  - Wheelchair user [Not Recovered/Not Resolved]
  - Fibula fracture [Not Recovered/Not Resolved]
  - X-ray abnormal [Unknown]
  - Hypokinesia [Not Recovered/Not Resolved]
  - Femur fracture [Not Recovered/Not Resolved]
  - Psoriasis [Not Recovered/Not Resolved]
  - Haemorrhage [Recovering/Resolving]
  - Walking disability [Not Recovered/Not Resolved]
  - Immune system disorder [Recovering/Resolving]
  - Lung disorder [Recovering/Resolving]
  - Surgery [Unknown]
  - Dysstasia [Recovering/Resolving]
  - Head injury [Recovering/Resolving]
  - Memory impairment [Not Recovered/Not Resolved]
  - Joint injury [Recovered/Resolved]
  - Ligament sprain [Recovered/Resolved]
  - Bone disorder [Recovering/Resolving]
  - Loss of consciousness [Unknown]
  - Bedridden [Recovering/Resolving]
  - Walking aid user [Not Recovered/Not Resolved]
  - Anxiety [Not Recovered/Not Resolved]
  - Post procedural complication [Unknown]
  - Gait inability [Not Recovered/Not Resolved]
  - Movement disorder [Not Recovered/Not Resolved]
  - Procedural pain [Not Recovered/Not Resolved]
  - Drug ineffective [Unknown]

NARRATIVE: CASE EVENT DATE: 20230101
